FAERS Safety Report 10648325 (Version 7)
Quarter: 2015Q1

REPORT INFORMATION
  Report Type: Spontaneous
  Country: US (occurrence: US)
  Receive Date: 20141212
  Receipt Date: 20150203
  Transmission Date: 20150720
  Serious: Yes (Life-Threatening, Other)
  Sender: FDA-Public Use
  Company Number: CHPA2014US015654

PATIENT
  Age: 56 Year
  Sex: Female

DRUGS (9)
  1. KLONOPIN [Suspect]
     Active Substance: CLONAZEPAM
     Indication: MUSCLE RELAXANT THERAPY
     Dosage: UNK
     Route: 048
     Dates: start: 2014
  2. POTASSIUM                          /00209301/ [Suspect]
     Active Substance: POTASSIUM BICARBONATE\POTASSIUM CHLORIDE
     Indication: PRODUCT USED FOR UNKNOWN INDICATION
     Dosage: UNK
     Route: 065
  3. ZELNORM [Concomitant]
     Active Substance: TEGASEROD MALEATE
     Indication: IMPAIRED GASTRIC EMPTYING
     Route: 048
  4. TRANSDERM SCOP [Suspect]
     Active Substance: SCOPOLAMINE
     Indication: OFF LABEL USE
     Dosage: 1 DF, QD
     Route: 062
     Dates: start: 20141126
  5. TRANSDERM SCOP [Suspect]
     Active Substance: SCOPOLAMINE
     Indication: IMPAIRED GASTRIC EMPTYING
     Dosage: UNK
     Route: 062
     Dates: start: 201409
  6. KLONOPIN [Suspect]
     Active Substance: CLONAZEPAM
     Dosage: DOUBLE AMOUNT
     Route: 065
     Dates: start: 20141202, end: 20141202
  7. BENZODIAZEPINES [Concomitant]
     Active Substance: BENZODIAZEPINE
  8. PHENERGAN [Suspect]
     Active Substance: PROMETHAZINE HYDROCHLORIDE
     Indication: VOMITING
     Dosage: UNK
     Route: 048
     Dates: start: 2014
  9. PHENERGAN [Suspect]
     Active Substance: PROMETHAZINE HYDROCHLORIDE
     Dosage: DOUBLE AMOUNT
     Route: 048
     Dates: start: 20141202, end: 20141202

REACTIONS (27)
  - Concomitant disease aggravated [Unknown]
  - Drug withdrawal syndrome [Not Recovered/Not Resolved]
  - Tremor [Recovering/Resolving]
  - Rash [Unknown]
  - Hypotonia [Recovering/Resolving]
  - Skin abrasion [Not Recovered/Not Resolved]
  - Skin disorder [Unknown]
  - Starvation [Recovered/Resolved]
  - Dyskinesia [Recovered/Resolved]
  - Vomiting [Recovered/Resolved]
  - Gait disturbance [Not Recovered/Not Resolved]
  - Rash generalised [Recovered/Resolved]
  - Insomnia [Recovering/Resolving]
  - Cardiac disorder [Unknown]
  - Hypersensitivity [Not Recovered/Not Resolved]
  - Dysuria [Not Recovered/Not Resolved]
  - Weight decreased [Recovering/Resolving]
  - Anxiety [Recovering/Resolving]
  - Feeling abnormal [Recovering/Resolving]
  - Dystonia [Unknown]
  - Diarrhoea [Unknown]
  - Somnolence [Unknown]
  - Hallucination [Recovering/Resolving]
  - Tic [Recovering/Resolving]
  - Ketosis [Recovered/Resolved]
  - Dry mouth [Not Recovered/Not Resolved]
  - Chemical injury [Not Recovered/Not Resolved]

NARRATIVE: CASE EVENT DATE: 201409
